FAERS Safety Report 6087430-X (Version None)
Quarter: 2009Q1

REPORT INFORMATION
  Report Type: 
  Country: None (occurrence: None)
  Receive Date: 20090223
  Receipt Date: 20090213
  Transmission Date: 20090719
  Serious: Yes (Hospitalization)
  Sender: FDA-Public Use
  Company Number: GB-MERCK-0902GBR00077

PATIENT
  Age: 77 Year
  Sex: Female

DRUGS (9)
  1. ZOCOR [Suspect]
     Route: 048
  2. CIPROFLOXACIN [Suspect]
     Indication: URINARY TRACT INFECTION
     Route: 065
  3. ASPIRIN [Concomitant]
     Route: 065
  4. CIMETIDINE [Concomitant]
     Route: 065
  5. FUROSEMIDE [Concomitant]
     Route: 065
  6. ISOSORBIDE MONONITRATE [Concomitant]
     Route: 065
  7. LEVOTHYROXINE SODIUM [Concomitant]
     Route: 065
  8. NICORANDIL [Concomitant]
     Route: 065
  9. PINDOLOL [Concomitant]
     Route: 065

REACTIONS (2)
  - DRUG INTERACTION [None]
  - RHABDOMYOLYSIS [None]
